FAERS Safety Report 21533231 (Version 1)
Quarter: 2022Q4

REPORT INFORMATION
  Report Type: Spontaneous
  Country: US (occurrence: US)
  Receive Date: 20221101
  Receipt Date: 20221101
  Transmission Date: 20230112
  Serious: Yes (Other)
  Sender: FDA-Public Use
  Company Number: US-BoehringerIngelheim-2022-BI-199335

PATIENT
  Sex: Female

DRUGS (1)
  1. JARDIANCE [Suspect]
     Active Substance: EMPAGLIFLOZIN
     Indication: Product used for unknown indication

REACTIONS (8)
  - Dementia [Unknown]
  - Hip fracture [Unknown]
  - Pelvic fracture [Unknown]
  - Blood glucose abnormal [Unknown]
  - Decubitus ulcer [Unknown]
  - Thrombosis [Unknown]
  - Swelling [Unknown]
  - Fall [Unknown]
